FAERS Safety Report 21451993 (Version 1)
Quarter: 2022Q4

REPORT INFORMATION
  Report Type: Spontaneous
  Country: US (occurrence: US)
  Receive Date: 20221013
  Receipt Date: 20221013
  Transmission Date: 20230113
  Serious: Yes (Hospitalization)
  Sender: FDA-Public Use
  Company Number: US-BRISTOL-MYERS SQUIBB COMPANY-2022-118242

PATIENT
  Age: 78 Year
  Sex: Female

DRUGS (2)
  1. REVLIMID [Suspect]
     Active Substance: LENALIDOMIDE
     Indication: Plasma cell myeloma
     Route: 048
     Dates: start: 20220909
  2. REVLIMID [Suspect]
     Active Substance: LENALIDOMIDE
     Indication: Atrial fibrillation

REACTIONS (4)
  - Paraesthesia [Unknown]
  - Gait disturbance [Unknown]
  - COVID-19 [Unknown]
  - Laryngitis [Unknown]
